FAERS Safety Report 13394135 (Version 1)
Quarter: 2017Q2

REPORT INFORMATION
  Report Type: Other
  Country: MY (occurrence: MY)
  Receive Date: 20170401
  Receipt Date: 20170401
  Transmission Date: 20170830
  Serious: Yes (Other)
  Sender: FDA-Public Use
  Company Number: MY-HETERO LABS LTD-1064893

PATIENT
  Age: 50 Year
  Sex: Male

DRUGS (1)
  1. TENOFOVIR [Suspect]
     Active Substance: TENOFOVIR
     Indication: CHRONIC HEPATITIS B
     Route: 065

REACTIONS (3)
  - Osteomalacia [Recovered/Resolved]
  - Vitamin D deficiency [Recovered/Resolved]
  - Bone density decreased [Recovered/Resolved]
